FAERS Safety Report 22589036 (Version 1)
Quarter: 2023Q2

REPORT INFORMATION
  Report Type: Spontaneous
  Country: US (occurrence: None)
  Receive Date: 20230609
  Receipt Date: 20230609
  Transmission Date: 20230721
  Serious: Yes (Death)
  Sender: FDA-Public Use
  Company Number: None

PATIENT
  Sex: Female

DRUGS (2)
  1. ALECENSA [Suspect]
     Active Substance: ALECTINIB HYDROCHLORIDE
     Indication: Lung neoplasm malignant
     Dosage: 150 MG ORAL??TAKE 3 CAPSULES BY MOUTH 2 TIMES A DAY
     Route: 048
     Dates: start: 20210519
  2. TABRECTA [Concomitant]
     Active Substance: CAPMATINIB

REACTIONS (1)
  - Death [None]
